FAERS Safety Report 15259730 (Version 1)
Quarter: 2018Q3

REPORT INFORMATION
  Report Type: Report from Study
  Country: BE (occurrence: BE)
  Receive Date: 20180809
  Receipt Date: 20180809
  Transmission Date: 20181010
  Serious: Yes (Other)
  Sender: FDA-Public Use
  Company Number: BE-TEVA-2018-BE-941003

PATIENT
  Age: 41 Year
  Sex: Female

DRUGS (1)
  1. COPAXONE [Suspect]
     Active Substance: GLATIRAMER ACETATE
     Indication: MULTIPLE SCLEROSIS
     Dosage: 20 MILLIGRAM/MILLILITERS DAILY;
     Route: 058
     Dates: start: 20070308

REACTIONS (7)
  - Abdominal distension [Recovering/Resolving]
  - Skin reaction [Recovering/Resolving]
  - Injection site induration [Recovering/Resolving]
  - Abdominal pain [Recovering/Resolving]
  - Skin discolouration [Recovering/Resolving]
  - Injection site reaction [Recovering/Resolving]
  - Injection site necrosis [Recovering/Resolving]

NARRATIVE: CASE EVENT DATE: 20180804
